FAERS Safety Report 9552218 (Version 1)
Quarter: 2013Q3

REPORT INFORMATION
  Report Type: Report from Study
  Country: GB (occurrence: GB)
  Receive Date: 20130925
  Receipt Date: 20130925
  Transmission Date: 20140515
  Serious: Yes (Other)
  Sender: FDA-Public Use
  Company Number: PHHY2013GB104706

PATIENT
  Age: 55 Year
  Sex: Female

DRUGS (2)
  1. SOMATROPIN [Suspect]
     Indication: GROWTH HORMONE DEFICIENCY
     Dosage: 0.4 MG, ONCE/SINGLE
     Route: 058
     Dates: start: 20110905
  2. SOMATROPIN [Suspect]
     Dosage: 0.2 MG, UNK
     Route: 058
     Dates: start: 201210

REACTIONS (1)
  - Lipoma [Recovering/Resolving]
